FAERS Safety Report 6704127-0 (Version None)
Quarter: 2010Q2

REPORT INFORMATION
  Report Type: 
  Country: None (occurrence: None)
  Receive Date: 20100430
  Receipt Date: 20100427
  Transmission Date: 20101027
  Serious: Yes (Death)
  Sender: FDA-Public Use
  Company Number: JP-JNJFOC-20100211002

PATIENT
  Sex: Female
  Weight: 71 kg

DRUGS (47)
  1. DOXORUBICIN HCL [Suspect]
     Indication: OVARIAN CANCER RECURRENT
     Route: 042
  2. DOXORUBICIN HCL [Suspect]
     Route: 042
  3. DOXORUBICIN HCL [Suspect]
     Route: 042
  4. FENTANYL [Suspect]
     Indication: DRUG USE FOR UNKNOWN INDICATION
     Route: 062
  5. FENTANYL [Suspect]
     Route: 062
  6. OXINORM [Suspect]
     Indication: DRUG USE FOR UNKNOWN INDICATION
     Route: 048
  7. AZUNOL [Concomitant]
     Indication: PROPHYLAXIS
     Route: 049
  8. MAGMITT [Concomitant]
     Route: 048
  9. LOXONIN [Concomitant]
     Route: 048
  10. SELBEX [Concomitant]
     Indication: PROPHYLAXIS
     Route: 048
  11. SOLANAX [Concomitant]
     Indication: PROPHYLAXIS
     Route: 048
  12. P GUARD [Concomitant]
     Route: 048
  13. GABAPEN [Concomitant]
     Route: 048
  14. GABAPEN [Concomitant]
     Route: 048
  15. RINESTERON [Concomitant]
     Route: 048
  16. OMEPRAZOLE [Concomitant]
     Indication: PROPHYLAXIS
     Route: 048
  17. OMEPRAZOLE [Concomitant]
     Route: 048
  18. KYTRIL [Concomitant]
     Indication: PROPHYLAXIS
     Route: 042
  19. KYTRIL [Concomitant]
     Route: 042
  20. KYTRIL [Concomitant]
     Route: 042
  21. KYTRIL [Concomitant]
     Indication: NAUSEA
     Route: 042
  22. KYTRIL [Concomitant]
     Route: 042
  23. KYTRIL [Concomitant]
     Route: 042
  24. KYTRIL [Concomitant]
     Route: 048
  25. KYTRIL [Concomitant]
     Route: 048
  26. NAUZELIN [Concomitant]
     Indication: PROPHYLAXIS
     Route: 048
  27. NAUZELIN [Concomitant]
     Route: 048
  28. NAUZELIN [Concomitant]
     Route: 048
  29. NAUZELIN [Concomitant]
     Route: 048
  30. NAUZELIN [Concomitant]
     Indication: NAUSEA
     Route: 048
  31. NAUZELIN [Concomitant]
     Route: 048
  32. NAUZELIN [Concomitant]
     Route: 048
  33. NAUZELIN [Concomitant]
     Route: 048
  34. ADONA [Concomitant]
     Route: 048
  35. ADONA [Concomitant]
     Route: 048
  36. TRANSAMIN [Concomitant]
     Route: 048
  37. TRANSAMIN [Concomitant]
     Route: 048
  38. DERMOVATE [Concomitant]
     Indication: PALMAR-PLANTAR ERYTHRODYSAESTHESIA SYNDROME
     Route: 061
  39. KETOPROFEN [Concomitant]
     Route: 062
  40. NEOLAMIN [Concomitant]
     Route: 042
  41. ADONA [Concomitant]
     Route: 042
  42. ADONA [Concomitant]
     Route: 042
  43. TRANSAMIN [Concomitant]
     Route: 042
  44. CEFAZOLIN SODIUM [Concomitant]
     Route: 042
  45. ATARAX [Concomitant]
     Route: 042
  46. ROPION [Concomitant]
     Route: 042
  47. NAUZELIN [Concomitant]
     Route: 048

REACTIONS (1)
  - OVARIAN CANCER [None]
